FAERS Safety Report 7866355-0 (Version None)
Quarter: 2011Q4

REPORT INFORMATION
  Report Type: 
  Country: None (occurrence: None)
  Receive Date: 20111028
  Receipt Date: 20110603
  Transmission Date: 20120403
  Serious: No
  Sender: FDA-Public Use
  Company Number: US-GLAXOSMITHKLINE-A0930172A

PATIENT
  Age: 79 Year
  Sex: Female

DRUGS (3)
  1. ADVAIR DISKUS 100/50 [Suspect]
     Indication: PRODUCT USED FOR UNKNOWN INDICATION
     Dosage: 1PUFF VARIABLE DOSE
     Route: 055
  2. XANAX [Concomitant]
  3. LEXAPRO [Concomitant]

REACTIONS (8)
  - TINNITUS [None]
  - HEADACHE [None]
  - TREMOR [None]
  - HYPERSENSITIVITY [None]
  - DIZZINESS [None]
  - HYPOAESTHESIA ORAL [None]
  - DIARRHOEA [None]
  - HYPOAESTHESIA [None]
